FAERS Safety Report 16610204 (Version 2)
Quarter: 2019Q3

REPORT INFORMATION
  Report Type: Spontaneous
  Country: PT (occurrence: PT)
  Receive Date: 20190722
  Receipt Date: 20190724
  Transmission Date: 20191004
  Serious: Yes (Death)
  Sender: FDA-Public Use
  Company Number: PT-ASTRAZENECA-2019SE99983

PATIENT
  Sex: Male

DRUGS (1)
  1. LYNPARZA [Suspect]
     Active Substance: OLAPARIB
     Indication: EWING^S SARCOMA
     Dosage: UNKNOWN
     Route: 048

REACTIONS (1)
  - Multiple organ dysfunction syndrome [Fatal]
